FAERS Safety Report 5413829-8 (Version None)
Quarter: 2007Q3

REPORT INFORMATION
  Report Type: 
  Country: None (occurrence: None)
  Receive Date: 20070814
  Receipt Date: 20061201
  Transmission Date: 20080115
  Serious: No
  Sender: FDA-Public Use
  Company Number: US-BRISTOL-MYERS SQUIBB COMPANY-13597190

PATIENT
  Age: 47 Year
  Sex: Male
  Weight: 84 kg

DRUGS (10)
  1. REYATAZ [Suspect]
     Indication: HIV INFECTION
     Route: 048
  2. ATIVAN [Concomitant]
  3. VIREAD [Concomitant]
  4. VIDEX EC [Concomitant]
  5. LIPITOR [Concomitant]
  6. ACYCLOVIR [Concomitant]
  7. LOMOTIL [Concomitant]
  8. FLAXSEED OIL [Concomitant]
  9. MULTI-VITAMIN [Concomitant]
  10. ASPIRIN [Concomitant]

REACTIONS (2)
  - ABNORMAL DREAMS [None]
  - HYPOMANIA [None]
